FAERS Safety Report 10064596 (Version 1)
Quarter: 2014Q1

REPORT INFORMATION
  Report Type: Spontaneous
  Country: US (occurrence: None)
  Receive Date: 20140328
  Receipt Date: 20140328
  Transmission Date: 20141002
  Serious: No
  Sender: FDA-Public Use
  Company Number: 1000054558

PATIENT
  Age: 74 Year
  Sex: Female

DRUGS (4)
  1. LINZESS [Suspect]
     Indication: CONSTIPATION
     Dosage: (AS NEEDED)
     Route: 048
     Dates: start: 201312, end: 201401
  2. DYAZIDE (DYAZIDE) (DYAZIDE) [Concomitant]
  3. NAPROXEN (NAPROXEN) (NAPROXEN) [Concomitant]
  4. PRAVASTATIN (PRAVASTATIN) (PRAVASTATIN) [Concomitant]

REACTIONS (2)
  - Diarrhoea [None]
  - Intentional drug misuse [None]
